FAERS Safety Report 4761076-5 (Version None)
Quarter: 2005Q3

REPORT INFORMATION
  Report Type: 
  Country: None (occurrence: None)
  Receive Date: 20050901
  Receipt Date: 20050822
  Transmission Date: 20060218
  Serious: Yes (Life-Threatening, Other)
  Sender: FDA-Public Use
  Company Number: 2005-03116

PATIENT
  Age: 45 Year
  Sex: Female

DRUGS (2)
  1. FERRLECIT [Suspect]
     Indication: ANAEMIA
     Dosage: 125 MG, QOD, INTRAVENOUS
     Route: 042
     Dates: start: 20050523, end: 20050611
  2. NORELGESTROMIN/ESTRADIOL [Concomitant]

REACTIONS (7)
  - ARRHYTHMIA [None]
  - HYPERHIDROSIS [None]
  - HYPOTENSION [None]
  - NAUSEA [None]
  - PARAESTHESIA [None]
  - SHOCK [None]
  - URTICARIA [None]
